FAERS Safety Report 16600616 (Version 3)
Quarter: 2019Q4

REPORT INFORMATION
  Report Type: Spontaneous
  Country: CH (occurrence: CH)
  Receive Date: 20190719
  Receipt Date: 20191023
  Transmission Date: 20200122
  Serious: Yes (Hospitalization, Other)
  Sender: FDA-Public Use
  Company Number: CH-MYLANLABS-2019M1051205

PATIENT
  Age: 11 Year
  Sex: Male
  Weight: 23 kg

DRUGS (1)
  1. EPIPEN [Suspect]
     Active Substance: EPINEPHRINE
     Indication: PRODUCT USED FOR UNKNOWN INDICATION
     Dosage: 0.3 MILLILITER, ONCE (SINGLE DOSE)
     Route: 058
     Dates: start: 20190522, end: 20190522

REACTIONS (4)
  - Anxiety [Recovered/Resolved]
  - Accidental exposure to product by child [Recovered/Resolved]
  - Sinus tachycardia [Recovered/Resolved]
  - Circumstance or information capable of leading to medication error [Unknown]

NARRATIVE: CASE EVENT DATE: 20190522
